FAERS Safety Report 15240561 (Version 2)
Quarter: 2018Q3

REPORT INFORMATION
  Report Type: Spontaneous
  Country: TW (occurrence: TW)
  Receive Date: 20180804
  Receipt Date: 20180809
  Transmission Date: 20181010
  Serious: Yes (Death, Hospitalization, Other)
  Sender: FDA-Public Use
  Company Number: TW-ACCORD-070285

PATIENT
  Age: 58 Year
  Sex: Male

DRUGS (3)
  1. FOLINIC ACID [Concomitant]
     Active Substance: LEUCOVORIN
     Indication: COLORECTAL ADENOCARCINOMA
     Dosage: BI?WEEKLY
     Dates: start: 20161230, end: 20170519
  2. OXALIPLATIN. [Suspect]
     Active Substance: OXALIPLATIN
     Indication: COLORECTAL ADENOCARCINOMA
     Dosage: BI?WEEKLY
     Dates: start: 20161230, end: 20170519
  3. FLUOROURACIL. [Concomitant]
     Active Substance: FLUOROURACIL
     Indication: COLORECTAL ADENOCARCINOMA
     Dates: start: 20161230, end: 20170519

REACTIONS (1)
  - Alveolitis allergic [Recovering/Resolving]

NARRATIVE: CASE EVENT DATE: 20170519
